FAERS Safety Report 9738448 (Version 2)
Quarter: 2013Q4

REPORT INFORMATION
  Report Type: Report from Study
  Country: BR (occurrence: BR)
  Receive Date: 20131208
  Receipt Date: 20131208
  Transmission Date: 20140711
  Serious: Yes (Other)
  Sender: FDA-Public Use
  Company Number: BR-ROCHE-1291386

PATIENT
  Sex: Female
  Weight: 48.5 kg

DRUGS (9)
  1. ACTEMRA [Suspect]
     Indication: RHEUMATOID ARTHRITIS
     Dosage: LATEST DOSE:  03SEP2013.
     Route: 065
     Dates: start: 20130612
  2. OMEPRAZOLE [Concomitant]
  3. METHOTREXATE [Concomitant]
  4. RIVOTRIL [Concomitant]
  5. AMITRIPTYLINE [Concomitant]
  6. FOLIC ACID [Concomitant]
  7. SIMVASTATIN [Concomitant]
  8. GLIFAGE [Concomitant]
  9. PREDNISONE [Concomitant]

REACTIONS (7)
  - Bedridden [Recovered/Resolved]
  - Arthralgia [Recovering/Resolving]
  - Musculoskeletal pain [Recovering/Resolving]
  - Neck pain [Recovering/Resolving]
  - Pain in extremity [Recovering/Resolving]
  - Feeling abnormal [Recovering/Resolving]
  - Osteoporosis [Not Recovered/Not Resolved]
